FAERS Safety Report 5353756-8 (Version None)
Quarter: 2007Q2

REPORT INFORMATION
  Report Type: 
  Country: None (occurrence: None)
  Receive Date: 20070608
  Receipt Date: 20070608
  Transmission Date: 20071010
  Serious: Yes (Other)
  Sender: FDA-Public Use
  Company Number: None

PATIENT
  Age: 74 Year
  Sex: Female
  Weight: 72.1219 kg

DRUGS (1)
  1. ERBITUX [Suspect]
     Indication: SQUAMOUS CELL CARCINOMA
     Dosage: 20MG ONE TIME TEST DOSE IV DRIP
     Route: 041
     Dates: start: 20070606, end: 20070606

REACTIONS (3)
  - BURNING SENSATION [None]
  - PARAESTHESIA [None]
  - PARAESTHESIA ORAL [None]
